FAERS Safety Report 13152224 (Version 1)
Quarter: 2017Q1

REPORT INFORMATION
  Report Type: Spontaneous
  Country: HR (occurrence: HR)
  Receive Date: 20170125
  Receipt Date: 20170125
  Transmission Date: 20170428
  Serious: Yes (Other)
  Sender: FDA-Public Use
  Company Number: HR-PFIZER INC-2017031095

PATIENT
  Sex: Female

DRUGS (4)
  1. ZOLOFT [Suspect]
     Active Substance: SERTRALINE HYDROCHLORIDE
     Dosage: UNK
     Route: 048
     Dates: start: 20161113
  2. QUETIAPIN [Suspect]
     Active Substance: QUETIAPINE
     Dosage: UNK
     Route: 048
     Dates: start: 20161113
  3. PRAZINE [Suspect]
     Active Substance: PROMAZINE HYDROCHLORIDE
     Dosage: UNK
     Route: 048
     Dates: start: 20161113
  4. LYRICA [Suspect]
     Active Substance: PREGABALIN
     Dosage: UNK
     Route: 048
     Dates: start: 20161113

REACTIONS (3)
  - Intentional overdose [Unknown]
  - Extrapyramidal disorder [Unknown]
  - Suicide attempt [Unknown]

NARRATIVE: CASE EVENT DATE: 20161113
